FAERS Safety Report 14557137 (Version 1)
Quarter: 2018Q1

REPORT INFORMATION
  Report Type: Report from Study
  Country: US (occurrence: US)
  Receive Date: 20180221
  Receipt Date: 20180221
  Transmission Date: 20180509
  Serious: Yes (Death, Other)
  Sender: FDA-Public Use
  Company Number: US-GILEAD-2018-0321946

PATIENT
  Age: 75 Year
  Sex: Male

DRUGS (13)
  1. BUMETANIDE. [Concomitant]
     Active Substance: BUMETANIDE
  2. AMBRISENTAN [Suspect]
     Active Substance: AMBRISENTAN
     Indication: PULMONARY HYPERTENSION
     Dosage: 10 MG, QD
     Route: 065
  3. FISH OIL [Concomitant]
     Active Substance: FISH OIL
  4. GABAPENTIN. [Concomitant]
     Active Substance: GABAPENTIN
  5. LISINOPRIL. [Concomitant]
     Active Substance: LISINOPRIL
  6. METOPROLOL TARTRATE. [Concomitant]
     Active Substance: METOPROLOL TARTRATE
  7. MVI                                /01825701/ [Concomitant]
     Active Substance: VITAMINS
  8. SODIUM BICARBONATE. [Concomitant]
     Active Substance: SODIUM BICARBONATE
  9. FUROSEMIDE. [Concomitant]
     Active Substance: FUROSEMIDE
  10. SPIRONOLACTONE. [Concomitant]
     Active Substance: SPIRONOLACTONE
  11. PANTOPRAZOLE [Concomitant]
     Active Substance: PANTOPRAZOLE
  12. POTASSIUM [Concomitant]
     Active Substance: POTASSIUM
  13. PRAVASTATIN. [Concomitant]
     Active Substance: PRAVASTATIN

REACTIONS (1)
  - Pulmonary arterial hypertension [Fatal]
